FAERS Safety Report 8014817-8 (Version None)
Quarter: 2011Q4

REPORT INFORMATION
  Report Type: 
  Country: None (occurrence: None)
  Receive Date: 20111229
  Receipt Date: 20111222
  Transmission Date: 20120403
  Serious: Yes (Other)
  Sender: FDA-Public Use
  Company Number: FR-BAXTER-2011BH040400

PATIENT
  Age: 32 Year
  Sex: Female

DRUGS (2)
  1. CYCLOPHOSPHAMIDE [Suspect]
     Indication: OFF LABEL USE
     Route: 048
  2. CYCLOPHOSPHAMIDE [Suspect]
     Indication: POLYNEUROPATHY
     Route: 048

REACTIONS (1)
  - BONE NEOPLASM [None]
